FAERS Safety Report 5854393-9 (Version None)
Quarter: 2008Q3

REPORT INFORMATION
  Report Type: 
  Country: None (occurrence: None)
  Receive Date: 20080822
  Receipt Date: 20080819
  Transmission Date: 20090109
  Serious: No
  Sender: FDA-Public Use
  Company Number: US-BOEHRINGER INGELHEIM GMBH, GERMANY-2008-BP-08173BP

PATIENT
  Age: 78 Year
  Sex: Female

DRUGS (5)
  1. COMBIVENT [Suspect]
     Indication: CHRONIC OBSTRUCTIVE PULMONARY DISEASE
     Route: 055
     Dates: start: 20040101
  2. TYLENOL [Concomitant]
     Indication: ARTHRITIS
  3. PULMICORT-100 [Concomitant]
     Indication: CHRONIC OBSTRUCTIVE PULMONARY DISEASE
  4. ATROVENT NASAL [Concomitant]
     Indication: SEASONAL ALLERGY
  5. ASTELIN [Concomitant]

REACTIONS (2)
  - CANDIDIASIS [None]
  - THERAPEUTIC RESPONSE DECREASED [None]
